FAERS Safety Report 5483238-4 (Version None)
Quarter: 2007Q4

REPORT INFORMATION
  Report Type: 
  Country: None (occurrence: None)
  Receive Date: 20071009
  Receipt Date: 20070928
  Transmission Date: 20080405
  Serious: Yes (Other)
  Sender: FDA-Public Use
  Company Number: 2007JP003474

PATIENT
  Age: 87 Year
  Sex: Female
  Weight: 30.5 kg

DRUGS (8)
  1. VESICARE [Suspect]
     Indication: HYPERTONIC BLADDER
     Dosage: 5 MG, UID/QD, ORAL
     Route: 048
     Dates: start: 20070523, end: 20070608
  2. BUFFERIN (ALUMINIUM GLYCINATE) TABLET [Concomitant]
  3. ASPARA (ASPARTATE POTASSIUM) TABLET [Concomitant]
  4. DEPAS (ETIZOLAM) TABLET [Concomitant]
  5. PERSANTIN (DIPYRIDAMOLE) TABLET [Concomitant]
  6. GASMOTIN (MOSAPRIDE CITRATE) TABLET [Concomitant]
  7. LENDORMIN (BROTIZOLAM) TABLET [Concomitant]
  8. MAGNESIUM OXIDE (MAGNESIUM OXIDE) POWDER [Concomitant]

REACTIONS (2)
  - CYSTITIS NONINFECTIVE [None]
  - URINARY BLADDER HAEMORRHAGE [None]
